FAERS Safety Report 15944457 (Version 1)
Quarter: 2019Q1

REPORT INFORMATION
  Report Type: Spontaneous
  Country: US (occurrence: US)
  Receive Date: 20190211
  Receipt Date: 20190211
  Transmission Date: 20190417
  Serious: No
  Sender: FDA-Public Use
  Company Number: US-CELGENEUS-USA-20190200860

PATIENT
  Sex: Female

DRUGS (6)
  1. THALOMID [Suspect]
     Active Substance: THALIDOMIDE
     Dosage: 200-300MG
     Route: 048
     Dates: start: 200405
  2. THALOMID [Suspect]
     Active Substance: THALIDOMIDE
     Dosage: 50-100MG
     Route: 048
     Dates: start: 200610
  3. THALOMID [Suspect]
     Active Substance: THALIDOMIDE
     Dosage: 50 MILLIGRAM
     Route: 048
     Dates: start: 200905
  4. THALOMID [Suspect]
     Active Substance: THALIDOMIDE
     Dosage: 400 MILLIGRAM
     Route: 048
     Dates: start: 200407
  5. THALOMID [Suspect]
     Active Substance: THALIDOMIDE
     Indication: PLASMA CELL MYELOMA IN REMISSION
     Dosage: 50 MILLIGRAM
     Route: 048
     Dates: start: 200405
  6. THALOMID [Suspect]
     Active Substance: THALIDOMIDE
     Dosage: 100-300MG
     Route: 048
     Dates: start: 200408

REACTIONS (1)
  - Adverse drug reaction [Unknown]
